FAERS Safety Report 13012283 (Version 3)
Quarter: 2017Q2

REPORT INFORMATION
  Report Type: Spontaneous
  Country: US (occurrence: US)
  Receive Date: 20161209
  Receipt Date: 20170420
  Transmission Date: 20170830
  Serious: Yes (Other)
  Sender: FDA-Public Use
  Company Number: US-PFIZER INC-2016570185

PATIENT
  Age: 65 Year
  Sex: Male

DRUGS (3)
  1. LIDOCAINE HCL [Suspect]
     Active Substance: LIDOCAINE HYDROCHLORIDE
     Indication: OSTEOARTHRITIS
     Dosage: 4 ML, UNK, ^1% 4 ML INJECTION INTO KNEE^
     Route: 014
     Dates: start: 20161116
  2. BUPIVACAINE HCL [Suspect]
     Active Substance: BUPIVACAINE HYDROCHLORIDE
     Dosage: 4 ML, UNK, ^0.5% 4 ML INJECTION INTO KNEE^
     Route: 014
     Dates: start: 20161116
  3. KENALOG [Suspect]
     Active Substance: TRIAMCINOLONE ACETONIDE
     Indication: OSTEOARTHRITIS
     Dosage: 2 ML, UNK, ^2 ML OF 40MG SOLUTION INJECTION INTO KNEE^
     Route: 014
     Dates: start: 20161116

REACTIONS (1)
  - Arthritis infective [Unknown]

NARRATIVE: CASE EVENT DATE: 20161118
